FAERS Safety Report 13433518 (Version 1)
Quarter: 2017Q2

REPORT INFORMATION
  Report Type: Not Available
  Country: None (occurrence: US)
  Receive Date: 20170412
  Receipt Date: 20170412
  Transmission Date: 20170830
  Serious: Yes (Congenital Anomaly, Other)
  Sender: FDA-Public Use
  Company Number: US-AKORN-49066

PATIENT
  Age: 78 Year
  Sex: Female

DRUGS (1)
  1. LATANOPROST 0.005% OPHTHAMLIC SOLUTION [Suspect]
     Active Substance: LATANOPROST

REACTIONS (4)
  - Instillation site inflammation [None]
  - Reaction to preservatives [None]
  - Keratitis [Recovered/Resolved]
  - Amniotic membrane graft [None]
